FAERS Safety Report 18940855 (Version 2)
Quarter: 2021Q1

REPORT INFORMATION
  Report Type: Report from Study
  Country: AR (occurrence: AR)
  Receive Date: 20210225
  Receipt Date: 20210312
  Transmission Date: 20210420
  Serious: Yes (Other)
  Sender: FDA-Public Use
  Company Number: NVSC2021AR040608

PATIENT
  Age: 28 Year
  Sex: Female

DRUGS (2)
  1. DIAZEPAM. [Concomitant]
     Active Substance: DIAZEPAM
     Indication: RESTLESSNESS
     Dosage: 5 MG
     Route: 065
  2. GILENYA [Suspect]
     Active Substance: FINGOLIMOD HYDROCHLORIDE
     Indication: MULTIPLE SCLEROSIS
     Dosage: 0.5 MG, QD
     Route: 048
     Dates: start: 20180924

REACTIONS (10)
  - Choking [Unknown]
  - Malaise [Unknown]
  - Tachycardia [Unknown]
  - Nervousness [Not Recovered/Not Resolved]
  - Exposure to extreme temperature [Unknown]
  - Phobia [Unknown]
  - Panic attack [Unknown]
  - Anxiety [Not Recovered/Not Resolved]
  - Dyspnoea [Unknown]
  - Tremor [Unknown]

NARRATIVE: CASE EVENT DATE: 202003
